FAERS Safety Report 7460208 (Version 5)
Quarter: 2014Q4

REPORT INFORMATION
  Report Type: Spontaneous
  Country: US (occurrence: US)
  Receive Date: 20100708
  Receipt Date: 20141204
  Transmission Date: 20150529
  Serious: Yes (Hospitalization, Other)
  Sender: FDA-Public Use
  Company Number: US-AMGEN-KDL421358

PATIENT
  Age: 60 Year
  Sex: Female

DRUGS (4)
  1. HUMIRA [Concomitant]
     Active Substance: ADALIMUMAB
     Dosage: UNK
     Dates: start: 2008
  2. ENBREL [Suspect]
     Active Substance: ETANERCEPT
     Indication: CROHN^S DISEASE
  3. ENBREL [Suspect]
     Active Substance: ETANERCEPT
     Indication: ANKYLOSING SPONDYLITIS
  4. ENBREL [Suspect]
     Active Substance: ETANERCEPT
     Indication: RHEUMATOID ARTHRITIS
     Dosage: 50 MG, QWK
     Route: 058
     Dates: start: 20060906

REACTIONS (21)
  - Red blood cell sedimentation rate increased [Not Recovered/Not Resolved]
  - Abdominal adhesions [Unknown]
  - Post procedural complication [Not Recovered/Not Resolved]
  - Pharyngeal oedema [Recovered/Resolved]
  - Intestinal obstruction [Unknown]
  - Dry throat [Recovered/Resolved]
  - Sinusitis [Recovered/Resolved]
  - Dysphonia [Not Recovered/Not Resolved]
  - Abdominal pain [Not Recovered/Not Resolved]
  - Drug ineffective [Unknown]
  - Vocal cord disorder [Recovered/Resolved]
  - Perineal abscess [Not Recovered/Not Resolved]
  - Perineal infection [Recovered/Resolved]
  - Gait disturbance [Not Recovered/Not Resolved]
  - Arthralgia [Not Recovered/Not Resolved]
  - Cystitis [Recovered/Resolved]
  - Infection [Unknown]
  - Perineal fistula [Not Recovered/Not Resolved]
  - Crohn^s disease [Recovered/Resolved]
  - Enterostomy [Recovered/Resolved]
  - Back pain [Not Recovered/Not Resolved]

NARRATIVE: CASE EVENT DATE: 2008
